FAERS Safety Report 23786017 (Version 4)
Quarter: 2024Q2

REPORT INFORMATION
  Report Type: Spontaneous
  Country: US (occurrence: US)
  Receive Date: 20240426
  Receipt Date: 20240617
  Transmission Date: 20240716
  Serious: No
  Sender: FDA-Public Use
  Company Number: US-HALEON-2170037

PATIENT
  Age: 63 Year
  Sex: Female

DRUGS (2)
  1. ALLI [Suspect]
     Active Substance: ORLISTAT
     Indication: Bowel movement irregularity
     Dosage: EXPDATE:202508 EXPIRATION DATE: DATE:202508 (120)
     Dates: start: 20240412
  2. ALLI [Suspect]
     Active Substance: ORLISTAT
     Dosage: EXPDATE:202501 EXPIRATION DATE:202501 (170)

REACTIONS (3)
  - Product use in unapproved indication [Unknown]
  - Drug effective for unapproved indication [Unknown]
  - Drug ineffective [Unknown]
